FAERS Safety Report 21491598 (Version 2)
Quarter: 2022Q4

REPORT INFORMATION
  Report Type: Report from Study
  Country: US (occurrence: US)
  Receive Date: 20221021
  Receipt Date: 20221028
  Transmission Date: 20230113
  Serious: No
  Sender: FDA-Public Use
  Company Number: US-NOVARTISTESTPH-NVSC2022US235102

PATIENT
  Sex: Male

DRUGS (1)
  1. KESIMPTA [Suspect]
     Active Substance: OFATUMUMAB
     Indication: Multiple sclerosis
     Dosage: 20 MG
     Route: 058
     Dates: start: 20221012

REACTIONS (5)
  - Influenza like illness [Recovering/Resolving]
  - Pain [Unknown]
  - Tremor [Recovering/Resolving]
  - Chills [Recovering/Resolving]
  - Device issue [Unknown]
